FAERS Safety Report 17939402 (Version 1)
Quarter: 2020Q2

REPORT INFORMATION
  Report Type: Spontaneous
  Country: FR (occurrence: FR)
  Receive Date: 20200624
  Receipt Date: 20200624
  Transmission Date: 20200714
  Serious: Yes (Hospitalization)
  Sender: FDA-Public Use
  Company Number: FR-JNJFOC-20200625427

PATIENT
  Age: 0 Year
  Sex: Female
  Weight: 2.87 kg

DRUGS (5)
  1. RISPERDAL [Suspect]
     Active Substance: RISPERIDONE
     Indication: SCHIZOAFFECTIVE DISORDER
     Route: 064
     Dates: start: 20190930, end: 20191213
  2. LEPTICUR [Suspect]
     Active Substance: TROPATEPINE HYDROCHLORIDE
     Indication: PARKINSONISM
     Route: 064
     Dates: start: 20190917, end: 20191213
  3. SERESTA [Suspect]
     Active Substance: OXAZEPAM
     Indication: ANXIETY
     Route: 064
     Dates: start: 20190906, end: 20191213
  4. LOXAPAC [Suspect]
     Active Substance: LOXAPINE
     Indication: SCHIZOAFFECTIVE DISORDER
     Dosage: 50-50-75 GOUTTES PAR JOUR
     Route: 064
     Dates: start: 20191101, end: 20191213
  5. IMOVANE [Suspect]
     Active Substance: ZOPICLONE
     Indication: SLEEP DISORDER
     Route: 064
     Dates: start: 20190823, end: 20191213

REACTIONS (3)
  - Hyporeflexia [Recovered/Resolved]
  - Poor feeding infant [Recovered/Resolved]
  - Foetal exposure during pregnancy [Unknown]

NARRATIVE: CASE EVENT DATE: 20191213
